FAERS Safety Report 4798520-3 (Version None)
Quarter: 2005Q4

REPORT INFORMATION
  Report Type: 
  Country: None (occurrence: None)
  Receive Date: 20051014
  Receipt Date: 20051003
  Transmission Date: 20060501
  Serious: Yes (Other)
  Sender: FDA-Public Use
  Company Number: US-MERCK-0510USA02497

PATIENT
  Age: 55 Year
  Sex: Male
  Weight: 98 kg

DRUGS (2)
  1. VIOXX [Suspect]
     Indication: CARDIAC DISORDER
     Route: 048
     Dates: start: 20021101, end: 20041001
  2. VIOXX [Suspect]
     Route: 048
     Dates: start: 20021101, end: 20041001

REACTIONS (4)
  - CARDIAC DISORDER [None]
  - CONDITION AGGRAVATED [None]
  - EMOTIONAL DISTRESS [None]
  - PRESCRIBED OVERDOSE [None]
